FAERS Safety Report 8574262-3 (Version None)
Quarter: 2012Q3

REPORT INFORMATION
  Report Type: 
  Country: None (occurrence: None)
  Receive Date: 20120806
  Receipt Date: 20120731
  Transmission Date: 20120928
  Serious: Yes (Life-Threatening, Other)
  Sender: FDA-Public Use
  Company Number: FR-ASTRAZENECA-2012SE43801

PATIENT
  Age: 23 Year
  Sex: Female

DRUGS (7)
  1. CARBOCAINE [Suspect]
     Indication: ANAESTHESIA
     Dates: start: 20120530, end: 20120530
  2. NAROPIN [Suspect]
     Indication: ANAESTHESIA
     Dates: start: 20120530, end: 20120530
  3. BETADINE [Suspect]
  4. BIRTH CONTROL PILL [Concomitant]
  5. CEFAZOLIN [Suspect]
     Indication: PROPHYLAXIS
     Route: 042
     Dates: start: 20120530, end: 20120530
  6. MIDAZOLAM HCL [Suspect]
     Dates: start: 20120530, end: 20120530
  7. SUFENTANIL CITRATE [Suspect]
     Dosage: 5, ONCE/SINGLE ADMINISTRATION
     Dates: start: 20120530, end: 20120530

REACTIONS (4)
  - VENTRICULAR TACHYCARDIA [None]
  - LARYNGEAL OEDEMA [None]
  - CARDIAC ARREST [None]
  - ANAPHYLACTIC SHOCK [None]
